FAERS Safety Report 17099202 (Version 1)
Quarter: 2019Q4

REPORT INFORMATION
  Report Type: Spontaneous
  Country: US (occurrence: US)
  Receive Date: 20191201
  Receipt Date: 20191201
  Transmission Date: 20200122
  Serious: Yes (Hospitalization)
  Sender: FDA-Public Use
  Company Number: None

PATIENT
  Sex: Female

DRUGS (11)
  1. BUSIPRONE [Concomitant]
  2. GABAPENTIN. [Concomitant]
     Active Substance: GABAPENTIN
  3. VANCOMYCIN [Concomitant]
     Active Substance: VANCOMYCIN
  4. LORAZEPAM. [Concomitant]
     Active Substance: LORAZEPAM
  5. METHOCARBAM [Concomitant]
     Active Substance: METHOCARBAMOL
  6. SMZ/TMP [Concomitant]
     Active Substance: SULFAMETHOXAZOLE\TRIMETHOPRIM
  7. OXYCODONE [Concomitant]
     Active Substance: OXYCODONE
  8. LACTOBACILLUS ACIDOPHILUS\LACTOBACILLUS BULGARICUS [Concomitant]
     Active Substance: LACTOBACILLUS ACIDOPHILUS\LACTOBACILLUS DELBRUECKII SUBSP. BULGARICUS
  9. HUMIRA [Suspect]
     Active Substance: ADALIMUMAB
     Indication: CROHN^S DISEASE
     Dosage: ?          OTHER FREQUENCY:EVERY OTHER WEEK;?
     Route: 058
  10. IBUPROFEN. [Concomitant]
     Active Substance: IBUPROFEN
  11. PANTOPRAZOLE [Concomitant]
     Active Substance: PANTOPRAZOLE

REACTIONS (4)
  - Impaired healing [None]
  - Fistula [None]
  - Wound drainage [None]
  - Therapy cessation [None]
